FAERS Safety Report 6164490-9 (Version None)
Quarter: 2009Q2

REPORT INFORMATION
  Report Type: 
  Country: None (occurrence: None)
  Receive Date: 20090421
  Receipt Date: 20090408
  Transmission Date: 20091009
  Serious: No
  Sender: FDA-Public Use
  Company Number: 006087

PATIENT
  Age: 83 Year
  Sex: Female

DRUGS (5)
  1. PLETAL [Suspect]
     Dosage: 200 MG, DAILY DOSE ORAL
     Route: 048
     Dates: start: 20090321
  2. LANSOPRAZOLE [Concomitant]
  3. ARICEPT JPN (DONEPEZIL HYDROCHLORIDE) [Concomitant]
  4. ISOSORBIDE DINITRATE [Concomitant]
  5. HOKUNALIN TAPE (TULOBUTEROL) [Concomitant]

REACTIONS (2)
  - CARDIAC FAILURE [None]
  - DYSURIA [None]
